FAERS Safety Report 5710950-1 (Version None)
Quarter: 2008Q2

REPORT INFORMATION
  Report Type: 
  Country: None (occurrence: None)
  Receive Date: 20080421
  Receipt Date: 20080416
  Transmission Date: 20081010
  Serious: Yes (Death)
  Sender: FDA-Public Use
  Company Number: PHHY2008JM05888

PATIENT
  Age: 4 Year
  Sex: Male

DRUGS (2)
  1. ACETAMINOPHEN [Concomitant]
  2. CATAFLAM [Suspect]
     Dosage: 15 MG/ML

REACTIONS (3)
  - INTRA-ABDOMINAL HAEMORRHAGE [None]
  - NO THERAPEUTIC RESPONSE [None]
  - PULMONARY HAEMORRHAGE [None]
